FAERS Safety Report 8374759-5 (Version None)
Quarter: 2012Q2

REPORT INFORMATION
  Report Type: 
  Country: None (occurrence: None)
  Receive Date: 20120521
  Receipt Date: 20120508
  Transmission Date: 20120825
  Serious: Yes (Other)
  Sender: FDA-Public Use
  Company Number: US-JNJFOC-20120313387

PATIENT
  Sex: Male
  Weight: 99.79 kg

DRUGS (6)
  1. REMICADE [Suspect]
     Route: 042
     Dates: start: 20110101
  2. MS CONTIN [Concomitant]
     Route: 065
  3. UNSPECIFIED NARCOTIC [Concomitant]
     Indication: PAIN
     Route: 062
  4. REMICADE [Suspect]
     Indication: PRODUCT USED FOR UNKNOWN INDICATION
     Dosage: ABOUT THE 5TH INFUSION
     Route: 042
     Dates: start: 20111001
  5. ANDROGEL [Concomitant]
     Route: 065
  6. CYMBALTA [Concomitant]
     Route: 065

REACTIONS (12)
  - FATIGUE [None]
  - DYSPNOEA [None]
  - ASTHENIA [None]
  - PRESYNCOPE [None]
  - FLUSHING [None]
  - INSOMNIA [None]
  - BLOOD TESTOSTERONE DECREASED [None]
  - INFUSION RELATED REACTION [None]
  - VISION BLURRED [None]
  - DECREASED APPETITE [None]
  - THROAT TIGHTNESS [None]
  - FEELING ABNORMAL [None]
